FAERS Safety Report 9644592 (Version 2)
Quarter: 2014Q1

REPORT INFORMATION
  Report Type: Spontaneous
  Country: JP (occurrence: JP)
  Receive Date: 20131025
  Receipt Date: 20140117
  Transmission Date: 20141002
  Serious: Yes (Hospitalization)
  Sender: FDA-Public Use
  Company Number: JP-AMGEN-JPNSP2013075113

PATIENT
  Age: 55 Year
  Sex: Female

DRUGS (2)
  1. RANMARK [Suspect]
     Indication: PRODUCT USED FOR UNKNOWN INDICATION
     Dosage: UNK
     Route: 058
     Dates: start: 201205, end: 20130326
  2. ZOMETA [Concomitant]
     Dosage: 4 MG, QD
     Route: 041
     Dates: start: 201109, end: 201204

REACTIONS (1)
  - Osteonecrosis of jaw [Recovering/Resolving]
